FAERS Safety Report 5608048-6 (Version None)
Quarter: 2008Q1

REPORT INFORMATION
  Report Type: 
  Country: None (occurrence: None)
  Receive Date: 20080130
  Receipt Date: 20080125
  Transmission Date: 20080703
  Serious: Yes (Death)
  Sender: FDA-Public Use
  Company Number: PHBS2008FR01426

PATIENT
  Age: 18 Year
  Sex: Female

DRUGS (3)
  1. AMPHOTERICIN B [Concomitant]
     Dosage: 10 MG/KG/DAY
  2. CASPOFUNGIN [Concomitant]
  3. DEFERASIROX [Suspect]
     Dosage: 25 MG/KG/DAY

REACTIONS (11)
  - DEBRIDEMENT [None]
  - DISEASE PROGRESSION [None]
  - DRUG INEFFECTIVE [None]
  - HAEMORRHAGE [None]
  - HEPATECTOMY [None]
  - HEPATIC NECROSIS [None]
  - MULTI-ORGAN FAILURE [None]
  - NECROSIS [None]
  - PERITONITIS [None]
  - THORACOTOMY [None]
  - ZYGOMYCOSIS [None]
